FAERS Safety Report 13945632 (Version 1)
Quarter: 2017Q3

REPORT INFORMATION
  Report Type: Spontaneous
  Country: MX (occurrence: MX)
  Receive Date: 20170907
  Receipt Date: 20170907
  Transmission Date: 20171128
  Serious: Yes (Death)
  Sender: FDA-Public Use
  Company Number: MX-PFIZER INC-2017388200

PATIENT
  Age: 68 Year
  Sex: Male

DRUGS (4)
  1. TRAMADOL. [Suspect]
     Active Substance: TRAMADOL
  2. PARACETAMOL [Suspect]
     Active Substance: ACETAMINOPHEN
  3. LYRICA [Suspect]
     Active Substance: PREGABALIN
     Dosage: UNK
  4. CYMBALTA [Suspect]
     Active Substance: DULOXETINE HYDROCHLORIDE

REACTIONS (9)
  - Hepatic failure [Fatal]
  - Tremor [Fatal]
  - Decreased appetite [Fatal]
  - Altered state of consciousness [Fatal]
  - Liver disorder [Fatal]
  - Neoplasm malignant [Fatal]
  - Pyrexia [Fatal]
  - Hepatic lesion [Fatal]
  - General physical health deterioration [Fatal]
